FAERS Safety Report 4665562-8 (Version None)
Quarter: 2005Q2

REPORT INFORMATION
  Report Type: 
  Country: None (occurrence: None)
  Receive Date: 20050519
  Receipt Date: 20040720
  Transmission Date: 20051028
  Serious: No
  Sender: FDA-Public Use
  Company Number: US-BRISTOL-MYERS SQUIBB COMPANY-12645925

PATIENT
  Age: 63 Year
  Sex: Male
  Weight: 120 kg

DRUGS (4)
  1. MONOPRIL [Suspect]
     Indication: HYPERTENSION
     Route: 048
     Dates: start: 19970101
  2. TENORMIN [Suspect]
  3. ASPIRIN [Concomitant]
  4. COREG [Concomitant]
     Indication: VENTRICULAR EXTRASYSTOLES

REACTIONS (3)
  - ASTHENIA [None]
  - DIZZINESS [None]
  - LOSS OF CONSCIOUSNESS [None]
